FAERS Safety Report 7297759-5 (Version None)
Quarter: 2011Q1

REPORT INFORMATION
  Report Type: 
  Country: None (occurrence: None)
  Receive Date: 20110214
  Receipt Date: 20110214
  Transmission Date: 20110831
  Serious: Yes (Life-Threatening, Hospitalization, Other)
  Sender: FDA-Public Use
  Company Number: None

PATIENT
  Sex: Male
  Weight: 88.4514 kg

DRUGS (2)
  1. LITHIUM CARBONATE 150MG VARIOUS/UNKNOWN [Suspect]
     Indication: MOOD SWINGS
     Dosage: 2 CAPSULES 2X DAILY PO
     Route: 048
     Dates: start: 20100115, end: 20100330
  2. LITHIUM CARBONATE 150MG VARIOUS/UNKNOWN [Suspect]
     Indication: BIPOLAR II DISORDER
     Dosage: 2 CAPSULES 2X DAILY PO
     Route: 048
     Dates: start: 20100115, end: 20100330

REACTIONS (11)
  - CONFUSIONAL STATE [None]
  - TREMOR [None]
  - TOXICITY TO VARIOUS AGENTS [None]
  - NYSTAGMUS [None]
  - HYPERTENSION [None]
  - ANTIPSYCHOTIC DRUG LEVEL BELOW THERAPEUTIC [None]
  - PYREXIA [None]
  - AMNESIA [None]
  - DYSPHAGIA [None]
  - DYSARTHRIA [None]
  - DIARRHOEA [None]
